FAERS Safety Report 19574300 (Version 1)
Quarter: 2021Q3

REPORT INFORMATION
  Report Type: Spontaneous
  Country: US (occurrence: US)
  Receive Date: 20210719
  Receipt Date: 20210719
  Transmission Date: 20211014
  Serious: Yes (Death, Other)
  Sender: FDA-Public Use
  Company Number: US-DRREDDYS-LIT/USA/21/0137859

PATIENT
  Age: 33 Year
  Sex: Male

DRUGS (5)
  1. VENLAFAXINE HYDROCHLORIDE. [Suspect]
     Active Substance: VENLAFAXINE HYDROCHLORIDE
     Indication: COMPLETED SUICIDE
  2. LEVETIRACETAM. [Suspect]
     Active Substance: LEVETIRACETAM
     Indication: HYPOTENSION
  3. SODIUM BICARBONATE DRIP [Suspect]
     Active Substance: SODIUM BICARBONATE
     Indication: ACIDOSIS
     Route: 041
  4. LORAZEPAM INJECTION USP, 2 MG/ML AND 4 MG/ML [Suspect]
     Active Substance: LORAZEPAM
     Indication: SEROTONIN SYNDROME
  5. NOREPINEPHRINE. [Suspect]
     Active Substance: NOREPINEPHRINE
     Indication: HYPOTENSION

REACTIONS (13)
  - Toxicity to various agents [Fatal]
  - Hyperthermia [Unknown]
  - Serotonin syndrome [Unknown]
  - Acidosis [Unknown]
  - Seizure [Recovered/Resolved]
  - Oliguria [Unknown]
  - Electrocardiogram QT prolonged [Unknown]
  - Acute respiratory distress syndrome [Unknown]
  - Hypoxia [Unknown]
  - Clonus [Unknown]
  - Hyperhidrosis [Unknown]
  - Pulseless electrical activity [Unknown]
  - Hypotension [Unknown]
